FAERS Safety Report 17928620 (Version 2)
Quarter: 2020Q3

REPORT INFORMATION
  Report Type: Spontaneous
  Country: US (occurrence: US)
  Receive Date: 20200623
  Receipt Date: 20200820
  Transmission Date: 20201103
  Serious: No
  Sender: FDA-Public Use
  Company Number: NVSC2020US175156

PATIENT
  Sex: Female

DRUGS (2)
  1. BRIMONIDINE TARTRATE. [Suspect]
     Active Substance: BRIMONIDINE TARTRATE
     Indication: GLAUCOMA
     Dosage: UNK
     Route: 065
  2. MIRAPEX [Concomitant]
     Active Substance: PRAMIPEXOLE DIHYDROCHLORIDE
     Indication: PRODUCT USED FOR UNKNOWN INDICATION
     Dosage: UNK
     Route: 065

REACTIONS (8)
  - Adverse reaction [Unknown]
  - Rhinorrhoea [Unknown]
  - Eye discharge [Unknown]
  - Pain [Unknown]
  - Eye irritation [Unknown]
  - Headache [Unknown]
  - Pruritus [Unknown]
  - Dizziness [Unknown]
